FAERS Safety Report 13205957 (Version 1)
Quarter: 2017Q1

REPORT INFORMATION
  Report Type: Spontaneous
  Country: US (occurrence: US)
  Receive Date: 20170209
  Receipt Date: 20170209
  Transmission Date: 20170428
  Serious: Yes (Disabling, Other)
  Sender: FDA-Public Use
  Company Number: US-SAOL THERAPEUTICS-2017SAO00265

PATIENT
  Age: 67 Year
  Sex: Male

DRUGS (3)
  1. BACLOFEN. [Suspect]
     Active Substance: BACLOFEN
     Dosage: 174.77 ?G, \DAY
     Dates: start: 20150521
  2. COLACE [Suspect]
     Active Substance: DOCUSATE SODIUM
     Dosage: UNK, \DAY
  3. BACLOFEN. [Suspect]
     Active Substance: BACLOFEN
     Dosage: 174.74 ?G, \DAY
     Dates: start: 20161230

REACTIONS (24)
  - Oedema [Unknown]
  - Muscular weakness [Unknown]
  - Hypotonia [Unknown]
  - Neuropathy peripheral [Unknown]
  - Dry mouth [Unknown]
  - Pain [Unknown]
  - Decreased appetite [Unknown]
  - Sleep disorder [Unknown]
  - Dizziness [Unknown]
  - Fall [Unknown]
  - Paraesthesia [Unknown]
  - Pallor [Unknown]
  - Muscle spasms [Unknown]
  - Hypoaesthesia [Unknown]
  - Anxiety [Unknown]
  - Activities of daily living impaired [Unknown]
  - Urinary incontinence [Unknown]
  - Device infusion issue [Unknown]
  - Weight decreased [Unknown]
  - Aortic aneurysm [Unknown]
  - Visual impairment [Unknown]
  - Memory impairment [Unknown]
  - Central nervous system lesion [Unknown]
  - Headache [Unknown]

NARRATIVE: CASE EVENT DATE: 201701
